FAERS Safety Report 24277193 (Version 1)
Quarter: 2024Q3

REPORT INFORMATION
  Report Type: Spontaneous
  Country: TW (occurrence: TW)
  Receive Date: 20240903
  Receipt Date: 20240903
  Transmission Date: 20241017
  Serious: Yes (Other)
  Sender: DR REDDYS
  Company Number: TW-RDY-SPO/TWN/24/0012718

PATIENT
  Age: 57 Year
  Sex: Female

DRUGS (6)
  1. DOXORUBICIN [Suspect]
     Active Substance: DOXORUBICIN
     Indication: Soft tissue sarcoma
  2. DOXORUBICIN [Suspect]
     Active Substance: DOXORUBICIN
     Indication: Ewing^s sarcoma
  3. CYCLOPHOSPHAMIDE [Suspect]
     Active Substance: CYCLOPHOSPHAMIDE
     Indication: Soft tissue sarcoma
  4. CYCLOPHOSPHAMIDE [Suspect]
     Active Substance: CYCLOPHOSPHAMIDE
     Indication: Ewing^s sarcoma
  5. VINCRISTINE [Suspect]
     Active Substance: VINCRISTINE
     Indication: Soft tissue sarcoma
  6. VINCRISTINE [Suspect]
     Active Substance: VINCRISTINE
     Indication: Ewing^s sarcoma

REACTIONS (2)
  - Leukopenia [Unknown]
  - Product use in unapproved indication [Unknown]
